FAERS Safety Report 9444224 (Version 1)
Quarter: 2013Q3

REPORT INFORMATION
  Report Type: Report from Study
  Country: FR (occurrence: FR)
  Receive Date: 20130807
  Receipt Date: 20130807
  Transmission Date: 20140515
  Serious: Yes (Hospitalization, Other)
  Sender: FDA-Public Use
  Company Number: PHHO2013FR010098

PATIENT
  Age: 48 Year
  Sex: Male
  Weight: 65 kg

DRUGS (2)
  1. PROGRAF [Suspect]
     Indication: LIVER TRANSPLANT
     Dosage: 10 MG, UNK
     Dates: start: 20130606
  2. MYFORTIC [Suspect]
     Indication: LIVER TRANSPLANT
     Dosage: 1440 MG, UNK
     Dates: start: 20130601

REACTIONS (3)
  - Pneumothorax [Unknown]
  - Cholestasis [Unknown]
  - Pulmonary embolism [Unknown]
